FAERS Safety Report 6447834-X (Version None)
Quarter: 2009Q4

REPORT INFORMATION
  Report Type: 
  Country: None (occurrence: None)
  Receive Date: 20091120
  Receipt Date: 20091110
  Transmission Date: 20100525
  Serious: Yes (Hospitalization)
  Sender: FDA-Public Use
  Company Number: IT-JNJFOC-20090902886

PATIENT
  Age: 77 Year
  Sex: Male

DRUGS (11)
  1. REMICADE [Suspect]
     Indication: RHEUMATOID ARTHRITIS
     Route: 042
     Dates: start: 20081009, end: 20090518
  2. DELTACORTENE [Concomitant]
     Indication: RHEUMATOID ARTHRITIS
     Route: 048
  3. ZOTON [Concomitant]
     Route: 048
  4. METHOTREXATE [Concomitant]
     Indication: RHEUMATOID ARTHRITIS
     Route: 030
  5. ACTONEL [Concomitant]
     Route: 048
  6. CACIT VITAMINE D3 [Concomitant]
  7. FOLIC ACID [Concomitant]
  8. LOSAZID [Concomitant]
  9. LOBIVON [Concomitant]
  10. AIRTAL [Concomitant]
     Route: 048
  11. XATRAL [Concomitant]
     Route: 048

REACTIONS (2)
  - PRODUCTIVE COUGH [None]
  - PULMONARY CAVITATION [None]
